FAERS Safety Report 8805624 (Version 1)
Quarter: 2012Q4

REPORT INFORMATION
  Report Type: 
  Country: US (occurrence: US)
  Receive Date: 20120924
  Receipt Date: 20120924
  Transmission Date: 20130627
  Serious: Yes (Death)
  Sender: FDA-Public Use
  Company Number: US-ROCHE-1129199

PATIENT
  Sex: Female

DRUGS (8)
  1. AVASTIN [Suspect]
     Indication: BREAST CANCER FEMALE
     Route: 065
     Dates: start: 20050627
  2. AVASTIN [Suspect]
     Indication: METASTASES TO LIVER
     Route: 065
     Dates: start: 20050711
  3. AVASTIN [Suspect]
     Route: 065
     Dates: start: 20050718
  4. AVASTIN [Suspect]
     Route: 065
     Dates: start: 20050801
  5. AVASTIN [Suspect]
     Route: 065
     Dates: start: 20050906
  6. AVASTIN [Suspect]
     Route: 065
     Dates: start: 20051114
  7. AVASTIN [Suspect]
     Route: 065
     Dates: start: 20051004
  8. AVASTIN [Suspect]
     Route: 065
     Dates: start: 20051024

REACTIONS (1)
  - Death [Fatal]
